FAERS Safety Report 7524959-9 (Version None)
Quarter: 2011Q2

REPORT INFORMATION
  Report Type: 
  Country: None (occurrence: None)
  Receive Date: 20110526
  Receipt Date: 20110514
  Transmission Date: 20111010
  Serious: Yes (Hospitalization)
  Sender: FDA-Public Use
  Company Number: 2011AP000995

PATIENT
  Age: 57 Year
  Sex: Female

DRUGS (2)
  1. CLARITHROMYCIN [Suspect]
     Indication: ACUTE SINUSITIS
     Dosage: 500 MG, BID
  2. CLARITHROMYCIN [Concomitant]

REACTIONS (1)
  - SERUM SICKNESS-LIKE REACTION [None]
